FAERS Safety Report 12341303 (Version 1)
Quarter: 2016Q2

REPORT INFORMATION
  Report Type: Report from Study
  Country: US (occurrence: US)
  Receive Date: 20160506
  Receipt Date: 20160506
  Transmission Date: 20160815
  Serious: No
  Sender: FDA-Public Use
  Company Number: PHEH2016US011135

PATIENT
  Sex: Female

DRUGS (17)
  1. ENTRESTO [Suspect]
     Active Substance: SACUBITRIL\VALSARTAN
     Indication: CARDIAC FAILURE CONGESTIVE
     Dosage: 49/51 MG, BID FOR 3 TO 4 WEEKS
     Route: 048
  2. SYNTHROID [Concomitant]
     Active Substance: LEVOTHYROXINE SODIUM
     Indication: THYROID DISORDER
     Dosage: 150 UG, UNK
     Route: 065
  3. OXYCODONE [Concomitant]
     Active Substance: OXYCODONE
     Indication: NEUROPATHY PERIPHERAL
     Dosage: QPM
     Route: 065
  4. METFORMIN [Concomitant]
     Active Substance: METFORMIN HYDROCHLORIDE
     Indication: DIABETES MELLITUS
     Route: 065
  5. SINEMET [Concomitant]
     Active Substance: CARBIDOPA\LEVODOPA
     Indication: NEUROPATHY PERIPHERAL
     Dosage: 2 OF THE 25/100^S QPM
     Route: 065
  6. VITAMIN D3 [Concomitant]
     Active Substance: CHOLECALCIFEROL
     Indication: SUPPLEMENTATION THERAPY
     Route: 065
  7. COQ10 [Concomitant]
     Active Substance: UBIDECARENONE
     Indication: SUPPLEMENTATION THERAPY
     Route: 065
  8. LANTUS [Concomitant]
     Active Substance: INSULIN GLARGINE
     Indication: DIABETES MELLITUS
     Dosage: 40 UNITS/ 37 UN, QAM/QPM
     Route: 058
  9. VICTOZA [Concomitant]
     Active Substance: LIRAGLUTIDE
     Indication: DIABETES MELLITUS
     Dosage: 1.8 UG, UNK
     Route: 065
  10. DIGOXIN. [Concomitant]
     Active Substance: DIGOXIN
     Indication: ATRIAL FIBRILLATION
     Route: 065
  11. NEURONTIN [Concomitant]
     Active Substance: GABAPENTIN
     Indication: NEUROPATHY PERIPHERAL
     Dosage: 800-1200MG QPM+ 400MG PRN
     Route: 065
  12. MULTI VITAMIN [Concomitant]
     Active Substance: VITAMINS
     Indication: SUPPLEMENTATION THERAPY
     Route: 065
  13. HUMALOG [Concomitant]
     Active Substance: INSULIN LISPRO
     Indication: DIABETES MELLITUS
     Dosage: 15 OT, BID TO TID
     Route: 058
  14. COUMADINE [Concomitant]
     Active Substance: WARFARIN SODIUM
     Indication: ATRIAL FIBRILLATION
     Route: 065
  15. MAGNESIUM [Concomitant]
     Active Substance: MAGNESIUM
     Indication: SUPPLEMENTATION THERAPY
     Route: 065
  16. CARVEDILOL. [Concomitant]
     Active Substance: CARVEDILOL
     Indication: ATRIAL FIBRILLATION
     Dosage: 12.5 MG, BID
     Route: 065
  17. TORSEMIDE. [Concomitant]
     Active Substance: TORSEMIDE
     Indication: CARDIAC FAILURE
     Dosage: 100MG QD, 50MG MON,WED, FRIDAY
     Route: 065

REACTIONS (4)
  - Oedema [Unknown]
  - Dysphonia [Unknown]
  - Dyspnoea [Unknown]
  - Blood creatinine increased [Unknown]
